FAERS Safety Report 8550294-6 (Version None)
Quarter: 2012Q3

REPORT INFORMATION
  Report Type: 
  Country: None (occurrence: None)
  Receive Date: 20120730
  Receipt Date: 20120726
  Transmission Date: 20120928
  Serious: Yes (Hospitalization)
  Sender: FDA-Public Use
  Company Number: PHHO2012NL011000

PATIENT
  Sex: Female
  Weight: 61.5 kg

DRUGS (5)
  1. NO TREATMENT RECEIVED [Suspect]
     Indication: BREAST CANCER
     Dosage: NO TREATMENT RECEIVED
  2. EPIRUBICIN [Suspect]
     Indication: BREAST CANCER
     Dosage: 177 MG, UNK
     Route: 042
     Dates: start: 20110322
  3. FLUOROURACIL [Suspect]
     Indication: BREAST CANCER
     Dosage: 885 MG, UNK
     Route: 042
     Dates: start: 20110322
  4. CYCLOPHOSPHAMIDE [Suspect]
     Indication: BREAST CANCER
     Dosage: 885 MG, UNK
     Route: 042
     Dates: start: 20110322
  5. GRANISETRON [Concomitant]
     Indication: PROPHYLAXIS
     Dosage: 2 MG, UNK
     Route: 048
     Dates: start: 20110322, end: 20110503

REACTIONS (1)
  - FEBRILE NEUTROPENIA [None]
